FAERS Safety Report 10386661 (Version 1)
Quarter: 2014Q3

REPORT INFORMATION
  Report Type: Spontaneous
  Country: US (occurrence: None)
  Receive Date: 20140814
  Receipt Date: 20140814
  Transmission Date: 20150326
  Serious: Yes (Hospitalization)
  Sender: FDA-Public Use
  Company Number: None

PATIENT
  Age: 92 Year
  Sex: Male

DRUGS (1)
  1. VALSARTAN. [Suspect]
     Active Substance: VALSARTAN
     Indication: HYPERTENSION
     Dates: start: 20080819, end: 20130918

REACTIONS (2)
  - Hyperkalaemia [None]
  - Unresponsive to stimuli [None]

NARRATIVE: CASE EVENT DATE: 20130918
